FAERS Safety Report 6433103-0 (Version None)
Quarter: 2009Q4

REPORT INFORMATION
  Report Type: 
  Country: None (occurrence: None)
  Receive Date: 20091109
  Receipt Date: 20091102
  Transmission Date: 20100525
  Serious: Yes (Death, Other)
  Sender: FDA-Public Use
  Company Number: US-BAXTER-2009BH016993

PATIENT
  Age: 71 Year
  Sex: Female

DRUGS (2)
  1. HEPARIN SODIUM INJECTION [Suspect]
     Indication: DRUG USE FOR UNKNOWN INDICATION
     Route: 065
     Dates: start: 20071115
  2. HEPARIN SODIUM INJECTION [Suspect]
     Route: 065
     Dates: start: 20071116

REACTIONS (12)
  - ANAEMIA [None]
  - ATELECTASIS [None]
  - CARDIO-RESPIRATORY ARREST [None]
  - DEATH [None]
  - HYPOTENSION [None]
  - LEUKOCYTOSIS [None]
  - OEDEMA [None]
  - PLATELET COUNT DECREASED [None]
  - PYREXIA [None]
  - RENAL FAILURE ACUTE [None]
  - RESPIRATORY FAILURE [None]
  - TACHYCARDIA [None]
